FAERS Safety Report 4909345-X (Version None)
Quarter: 2006Q1

REPORT INFORMATION
  Report Type: 
  Country: None (occurrence: None)
  Receive Date: 20060213
  Receipt Date: 20041203
  Transmission Date: 20060701
  Serious: Yes (Other)
  Sender: FDA-Public Use
  Company Number: GB-GLAXOSMITHKLINE-B0361235A

PATIENT
  Sex: Female

DRUGS (4)
  1. PAROXETINE HYDROCHLORIDE [Suspect]
     Route: 065
     Dates: start: 19991001
  2. FLUOXETINE [Concomitant]
     Route: 065
  3. LOFEPRAMINE [Concomitant]
     Route: 065
  4. MIRTAZAPINE [Concomitant]
     Route: 065

REACTIONS (16)
  - AGITATION [None]
  - ANXIETY [None]
  - CRYING [None]
  - DEPRESSION [None]
  - DRUG EFFECT DECREASED [None]
  - DRUG INTOLERANCE [None]
  - DRUG WITHDRAWAL SYNDROME [None]
  - FATIGUE [None]
  - FEELINGS OF WORTHLESSNESS [None]
  - INSOMNIA [None]
  - INTENTIONAL SELF-INJURY [None]
  - OVERDOSE [None]
  - REFUSAL OF TREATMENT BY PATIENT [None]
  - RESTLESSNESS [None]
  - SCRATCH [None]
  - SUICIDAL IDEATION [None]
